FAERS Safety Report 25277863 (Version 1)
Quarter: 2025Q2

REPORT INFORMATION
  Report Type: Spontaneous
  Country: GB (occurrence: GB)
  Receive Date: 20250507
  Receipt Date: 20250507
  Transmission Date: 20250717
  Serious: Yes (Other)
  Sender: GLAND PHARMA LTD
  Company Number: GB-GLANDPHARMA-GB-2025GLNLIT01208

PATIENT
  Sex: Male

DRUGS (1)
  1. CYTARABINE [Suspect]
     Active Substance: CYTARABINE
     Indication: Langerhans^ cell histiocytosis
     Route: 065

REACTIONS (3)
  - Septic shock [Recovering/Resolving]
  - Febrile neutropenia [Unknown]
  - Product use in unapproved indication [Unknown]
